FAERS Safety Report 8047415-0 (Version None)
Quarter: 2012Q1

REPORT INFORMATION
  Report Type: 
  Country: None (occurrence: None)
  Receive Date: 20120116
  Receipt Date: 20120105
  Transmission Date: 20120608
  Serious: Yes (Other)
  Sender: FDA-Public Use
  Company Number: SE-JNJFOC-20111107547

PATIENT
  Age: 18 Year
  Sex: Male

DRUGS (3)
  1. METHOTREXATE [Suspect]
     Indication: SPONDYLITIS
     Route: 065
     Dates: start: 20110412, end: 20110901
  2. FOLIC ACID [Concomitant]
     Route: 065
     Dates: end: 20110901
  3. REMICADE [Suspect]
     Indication: SPONDYLITIS
     Route: 042
     Dates: start: 20110411, end: 20110928

REACTIONS (3)
  - CARDIOMEGALY [None]
  - ARRHYTHMIA [None]
  - CARDIAC FAILURE [None]
